FAERS Safety Report 6675203-6 (Version None)
Quarter: 2010Q2

REPORT INFORMATION
  Report Type: 
  Country: None (occurrence: None)
  Receive Date: 20100409
  Receipt Date: 20100407
  Transmission Date: 20101027
  Serious: Yes (Hospitalization)
  Sender: FDA-Public Use
  Company Number: US-CEPHALON-2010002013

PATIENT
  Sex: Female

DRUGS (2)
  1. TREANDA [Suspect]
     Indication: NON-HODGKIN'S LYMPHOMA
     Dates: start: 20100323
  2. RITUXAN [Concomitant]
     Indication: NON-HODGKIN'S LYMPHOMA

REACTIONS (4)
  - ABDOMINAL PAIN [None]
  - FLUSHING [None]
  - PYREXIA [None]
  - TACHYCARDIA [None]
